FAERS Safety Report 25999502 (Version 1)
Quarter: 2025Q4

REPORT INFORMATION
  Report Type: Spontaneous
  Country: JP (occurrence: JP)
  Receive Date: 20251105
  Receipt Date: 20251105
  Transmission Date: 20260118
  Serious: Yes (Death, Hospitalization, Other)
  Sender: Long Grove Pharmaceuticals
  Company Number: JP-Long Grove-000160

PATIENT
  Age: 8 Decade
  Sex: Male
  Weight: 51.5 kg

DRUGS (5)
  1. TRIAMCINOLONE ACETONIDE [Suspect]
     Active Substance: TRIAMCINOLONE ACETONIDE
     Indication: Prophylaxis
  2. PREDNISOLONE [Suspect]
     Active Substance: PREDNISOLONE
     Indication: Prophylaxis
     Route: 048
  3. FUROSEMIDE [Concomitant]
     Active Substance: FUROSEMIDE
     Indication: Ascites
  4. SPIRONOLACTONE [Concomitant]
     Active Substance: SPIRONOLACTONE
     Indication: Ascites
  5. TOLVAPTAN [Concomitant]
     Active Substance: TOLVAPTAN
     Indication: Ascites

REACTIONS (5)
  - Ascites [Unknown]
  - Intestinal perforation [Fatal]
  - Intestinal ischaemia [Fatal]
  - Condition aggravated [Unknown]
  - Cardiac ventricular thrombosis [Unknown]
